FAERS Safety Report 12391046 (Version 2)
Quarter: 2017Q2

REPORT INFORMATION
  Report Type: Report from Study
  Country: US (occurrence: US)
  Receive Date: 20160520
  Receipt Date: 20170518
  Transmission Date: 20170830
  Serious: Yes (Hospitalization)
  Sender: FDA-Public Use
  Company Number: US-ACTELION-A-US2016-134824

PATIENT
  Age: 14 Year
  Sex: Male

DRUGS (11)
  1. NONI [Concomitant]
  2. VITAMIN C [Concomitant]
     Active Substance: ASCORBIC ACID
  3. MELATONIN [Concomitant]
     Active Substance: MELATONIN
  4. MOTRIN [Suspect]
     Active Substance: IBUPROFEN
     Indication: PRODUCT USED FOR UNKNOWN INDICATION
     Route: 065
  5. SILDENAFIL. [Concomitant]
     Active Substance: SILDENAFIL
  6. NEXIUM [Concomitant]
     Active Substance: ESOMEPRAZOLE MAGNESIUM
  7. TYVASO [Concomitant]
     Active Substance: TREPROSTINIL
  8. PROBIOTIC [Concomitant]
     Active Substance: PROBIOTICS NOS
  9. TRACLEER [Suspect]
     Active Substance: BOSENTAN
     Indication: PULMONARY HYPERTENSION
     Dosage: 125 MG, BID
     Route: 048
     Dates: start: 20160810
  10. MULTIVITAMIN + MINERAL [Concomitant]
  11. XOPENEX [Concomitant]
     Active Substance: LEVALBUTEROL HYDROCHLORIDE

REACTIONS (7)
  - Flatulence [Unknown]
  - Viral upper respiratory tract infection [Unknown]
  - Transfusion [Unknown]
  - Diarrhoea [Unknown]
  - Exercise tolerance decreased [Unknown]
  - Gastrointestinal haemorrhage [Recovered/Resolved]
  - Dyspnoea [Unknown]
